FAERS Safety Report 4653513-1 (Version None)
Quarter: 2005Q2

REPORT INFORMATION
  Report Type: 
  Country: None (occurrence: None)
  Receive Date: 20050404
  Receipt Date: 20041221
  Transmission Date: 20051028
  Serious: No
  Sender: FDA-Public Use
  Company Number: US_0501110219

PATIENT
  Age: 60 Year
  Sex: Female

DRUGS (2)
  1. CYMBALTA [Suspect]
     Dosage: 60 MG DAY
     Dates: start: 20041014, end: 20041125
  2. ZYPREXA [Suspect]
     Dosage: 10 MG

REACTIONS (1)
  - PARAESTHESIA [None]
